FAERS Safety Report 15129046 (Version 1)
Quarter: 2018Q3

REPORT INFORMATION
  Report Type: Spontaneous
  Country: ZA (occurrence: ZA)
  Receive Date: 20180711
  Receipt Date: 20180711
  Transmission Date: 20181010
  Serious: Yes (Other)
  Sender: FDA-Public Use
  Company Number: ZA-CIPLA LTD.-2018ZA19810

PATIENT

DRUGS (4)
  1. CELEBREX [Concomitant]
     Active Substance: CELECOXIB
     Indication: SPONDYLITIS
     Dosage: UNK
     Route: 065
  2. COXFLAM [Suspect]
     Active Substance: MELOXICAM
     Indication: PRODUCT USED FOR UNKNOWN INDICATION
     Dosage: UNK
     Route: 065
  3. CATAFLAM                           /00372302/ [Concomitant]
     Active Substance: DICLOFENAC SODIUM
     Indication: SPONDYLITIS
     Dosage: UNK
     Route: 065
  4. SALAZOPYRIN [Concomitant]
     Active Substance: SULFASALAZINE
     Indication: SPONDYLITIS
     Dosage: UNK
     Route: 065

REACTIONS (5)
  - Arthritis [Unknown]
  - Tenderness [Unknown]
  - Loss of personal independence in daily activities [Unknown]
  - Dactylitis [Unknown]
  - Joint swelling [Unknown]

NARRATIVE: CASE EVENT DATE: 2016
